FAERS Safety Report 10185363 (Version 2)
Quarter: 2014Q2

REPORT INFORMATION
  Report Type: Spontaneous
  Country: BR (occurrence: BR)
  Receive Date: 20140521
  Receipt Date: 20140623
  Transmission Date: 20141212
  Serious: Yes (Disabling)
  Sender: FDA-Public Use
  Company Number: BR-UCBSA-121567

PATIENT
  Sex: Female

DRUGS (8)
  1. CIMZIA [Suspect]
     Indication: RHEUMATOID ARTHRITIS
     Dosage: 2 SYRINGES MONTHLY
     Route: 058
     Dates: start: 201311, end: 2014
  2. FOLIC ACID [Concomitant]
  3. METHOTREXATE [Concomitant]
  4. PREDNISONE [Concomitant]
  5. CALCIUM [Concomitant]
  6. VITAMIN D [Concomitant]
  7. IBUPROFEN ACTAVIS [Concomitant]
     Indication: PAIN
  8. PARACETAMOL BIOGARAN [Concomitant]
     Indication: PAIN

REACTIONS (3)
  - Movement disorder [Unknown]
  - Pain [Not Recovered/Not Resolved]
  - Intentional product misuse [Not Recovered/Not Resolved]
